FAERS Safety Report 25715989 (Version 1)
Quarter: 2025Q3

REPORT INFORMATION
  Report Type: Spontaneous
  Country: EU (occurrence: EU)
  Receive Date: 20250822
  Receipt Date: 20250822
  Transmission Date: 20251021
  Serious: Yes (Hospitalization)
  Sender: PFIZER
  Company Number: None

PATIENT
  Age: 28 Year
  Sex: Female
  Weight: 74 kg

DRUGS (1)
  1. ETHINYL ESTRADIOL\LEVONORGESTREL [Suspect]
     Active Substance: ETHINYL ESTRADIOL\LEVONORGESTREL
     Indication: Hormonal contraception
     Dosage: 1 DF, 1X/DAY
     Route: 048
     Dates: end: 20240714

REACTIONS (1)
  - Cerebral venous sinus thrombosis [Recovered/Resolved with Sequelae]

NARRATIVE: CASE EVENT DATE: 20240708
